FAERS Safety Report 6946202-1 (Version None)
Quarter: 2010Q3

REPORT INFORMATION
  Report Type: 
  Country: None (occurrence: None)
  Receive Date: 20100823
  Receipt Date: 20100810
  Transmission Date: 20110219
  Serious: Yes (Hospitalization)
  Sender: FDA-Public Use
  Company Number: B0670548A

PATIENT
  Age: 59 Year
  Sex: Female

DRUGS (6)
  1. CIMETIDINE [Suspect]
     Indication: GASTROOESOPHAGEAL REFLUX DISEASE
     Dosage: ORAL
     Route: 047
  2. METFORMIN HCL [Suspect]
     Indication: TYPE 2 DIABETES MELLITUS
     Dosage: ORAL
     Route: 048
  3. FENOFIBRATE [Concomitant]
  4. LISINOPRIL [Concomitant]
  5. FLUVASTATIN SODIUM [Concomitant]
  6. ATENOLOL [Concomitant]

REACTIONS (14)
  - ALANINE AMINOTRANSFERASE INCREASED [None]
  - ANION GAP INCREASED [None]
  - ASPARTATE AMINOTRANSFERASE INCREASED [None]
  - BLOOD LACTATE DEHYDROGENASE INCREASED [None]
  - BLOOD PHOSPHORUS INCREASED [None]
  - BLOOD POTASSIUM INCREASED [None]
  - BLOOD PRESSURE DECREASED [None]
  - CARDIAC MURMUR [None]
  - DIALYSIS [None]
  - HAEMOGLOBIN DECREASED [None]
  - LACTIC ACIDOSIS [None]
  - PANCREATITIS [None]
  - POTENTIATING DRUG INTERACTION [None]
  - RENAL FAILURE ACUTE [None]
